FAERS Safety Report 5716178-3 (Version None)
Quarter: 2008Q2

REPORT INFORMATION
  Report Type: 
  Country: None (occurrence: None)
  Receive Date: 20080424
  Receipt Date: 20080416
  Transmission Date: 20081010
  Serious: Yes (Other)
  Sender: FDA-Public Use
  Company Number: US-JNJFOC-20080404434

PATIENT
  Age: 59 Year
  Sex: Female

DRUGS (8)
  1. DOXORUBICIN HYDROCHLORIDE [Suspect]
     Indication: OVARIAN CANCER RECURRENT
     Route: 042
  2. PACLITAXEL [Suspect]
     Indication: OVARIAN CANCER RECURRENT
     Route: 065
  3. CARBOPLATIN [Suspect]
     Indication: OVARIAN CANCER RECURRENT
     Route: 065
  4. BEVACIZUMAB [Suspect]
     Indication: OVARIAN CANCER RECURRENT
     Route: 065
  5. TOPOTECAN [Suspect]
     Indication: OVARIAN CANCER RECURRENT
     Route: 065
  6. ETOPOSIDE [Suspect]
     Indication: OVARIAN CANCER RECURRENT
     Route: 065
  7. GEMCITABINE [Suspect]
     Indication: OVARIAN CANCER RECURRENT
     Route: 065
  8. NAPROXEN [Concomitant]
     Indication: OSTEOARTHRITIS
     Route: 065

REACTIONS (2)
  - INTESTINAL OBSTRUCTION [None]
  - OVARIAN CANCER [None]
